FAERS Safety Report 8921285 (Version 2)
Quarter: 2013Q1

REPORT INFORMATION
  Report Type: Spontaneous
  Country: IT (occurrence: IT)
  Receive Date: 20121121
  Receipt Date: 20130122
  Transmission Date: 20140127
  Serious: Yes (Other)
  Sender: FDA-Public Use
  Company Number: IT-BRISTOL-MYERS SQUIBB COMPANY-17095027

PATIENT
  Age: 60 Year
  Sex: Female

DRUGS (6)
  1. MYCOSTATIN [Suspect]
     Indication: FUNGAL INFECTION
     Dosage: 100000IU/ML, SUSPENSION
     Route: 048
     Dates: start: 20121012, end: 20121014
  2. SINTROM [Interacting]
     Indication: CARDIAC VALVE PROSTHESIS USER
     Dosage: INTRUPTED ON 14OCT12, RESTARTED
     Route: 048
     Dates: start: 19970511
  3. LANSOPRAZOLE [Concomitant]
  4. ALLOPURINOL [Concomitant]
  5. SOTALOL [Concomitant]
  6. VALSARTAN [Concomitant]

REACTIONS (2)
  - International normalised ratio increased [Recovered/Resolved]
  - Drug interaction [Unknown]
